FAERS Safety Report 14784359 (Version 1)
Quarter: 2018Q2

REPORT INFORMATION
  Report Type: Spontaneous
  Country: IT (occurrence: IT)
  Receive Date: 20180420
  Receipt Date: 20180420
  Transmission Date: 20180711
  Serious: Yes (Hospitalization, Other)
  Sender: FDA-Public Use
  Company Number: IT-GLENMARK PHARMACEUTICALS-2018GMK034495

PATIENT
  Age: 80 Year
  Sex: Male

DRUGS (2)
  1. BECLOMETASONE [Concomitant]
     Active Substance: BECLOMETHASONE DIPROPIONATE
     Indication: CHRONIC OBSTRUCTIVE PULMONARY DISEASE
     Dosage: INHALED
     Route: 055
     Dates: start: 20170401
  2. LEVOFLOXACIN. [Suspect]
     Active Substance: LEVOFLOXACIN
     Dosage: 1500 MG, QD
     Route: 065
     Dates: start: 20170515, end: 20170522

REACTIONS (3)
  - Ballismus [Recovering/Resolving]
  - Toxicity to various agents [Recovering/Resolving]
  - Chorea [Recovering/Resolving]

NARRATIVE: CASE EVENT DATE: 20170517
